FAERS Safety Report 12839784 (Version 1)
Quarter: 2016Q4

REPORT INFORMATION
  Report Type: Spontaneous
  Country: US (occurrence: US)
  Receive Date: 20161011
  Receipt Date: 20161011
  Transmission Date: 20170207
  Serious: Yes (Life-Threatening, Other)
  Sender: FDA-Public Use
  Company Number: None

PATIENT
  Age: 68 Year
  Sex: Male
  Weight: 120.3 kg

DRUGS (12)
  1. CRESEMBA [Suspect]
     Active Substance: ISAVUCONAZONIUM SULFATE
     Indication: OSTEOMYELITIS
     Route: 040
     Dates: start: 20161007, end: 20161011
  2. DULOXETINE. [Concomitant]
     Active Substance: DULOXETINE
  3. METRONIDAZOLE. [Concomitant]
     Active Substance: METRONIDAZOLE
  4. ASPIRIN. [Concomitant]
     Active Substance: ASPIRIN
  5. CEFTAROLINE (TEFLARO) [Concomitant]
  6. CIPROFLOXACIN. [Concomitant]
     Active Substance: CIPROFLOXACIN
  7. INSULIN DRIP INFUSION [Concomitant]
  8. MULTIVITAMIN [Concomitant]
     Active Substance: VITAMINS
  9. SIMVASTATIN. [Concomitant]
     Active Substance: SIMVASTATIN
  10. LEVOTHYROXINE. [Concomitant]
     Active Substance: LEVOTHYROXINE
  11. HEPARIN DRIP INFUSION [Concomitant]
  12. FAMOTIDINE. [Concomitant]
     Active Substance: FAMOTIDINE

REACTIONS (3)
  - Respiratory rate decreased [None]
  - Apnoea [None]
  - Infusion related reaction [None]

NARRATIVE: CASE EVENT DATE: 20161007
